FAERS Safety Report 7988149-8 (Version None)
Quarter: 2011Q4

REPORT INFORMATION
  Report Type: 
  Country: None (occurrence: None)
  Receive Date: 20111216
  Receipt Date: 20110607
  Transmission Date: 20120403
  Serious: Yes (Other)
  Sender: FDA-Public Use
  Company Number: US-BRISTOL-MYERS SQUIBB COMPANY-15809726

PATIENT
  Age: 47 Year
  Sex: Male
  Weight: 141 kg

DRUGS (2)
  1. HYDROXYZINE [Concomitant]
     Dosage: 1/2 DURING THE DAY AND WHOLE AT NIGHT
  2. ABILIFY [Suspect]

REACTIONS (1)
  - WEIGHT INCREASED [None]
